FAERS Safety Report 25090503 (Version 4)
Quarter: 2025Q3

REPORT INFORMATION
  Report Type: Report from Study
  Country: CA (occurrence: CA)
  Receive Date: 20250318
  Receipt Date: 20250811
  Transmission Date: 20251020
  Serious: Yes (Other)
  Sender: MYLAN
  Company Number: CA-MYLANLABS-2024M1080958

PATIENT
  Sex: Female

DRUGS (40)
  1. GLATIRAMER ACETATE [Suspect]
     Active Substance: GLATIRAMER ACETATE
     Indication: Relapsing-remitting multiple sclerosis
     Dosage: 20 MILLIGRAM, QD (ONCE DAILY)
     Route: 058
  2. GLATIRAMER ACETATE [Suspect]
     Active Substance: GLATIRAMER ACETATE
     Indication: Multiple sclerosis
     Dosage: 20 MILLIGRAM, QD (ONCE DAILY)
  3. GLATIRAMER ACETATE [Suspect]
     Active Substance: GLATIRAMER ACETATE
     Dosage: 20 MILLIGRAM, QD (ONCE DAILY)
  4. GLATIRAMER ACETATE [Suspect]
     Active Substance: GLATIRAMER ACETATE
     Dosage: 20 MILLIGRAM, QD (ONCE DAILY)
     Route: 058
  5. GLATIRAMER ACETATE [Suspect]
     Active Substance: GLATIRAMER ACETATE
     Dosage: 20 MILLIGRAM, QD (ONCE DAILY)
     Route: 058
     Dates: start: 20240906
  6. GLATIRAMER ACETATE [Suspect]
     Active Substance: GLATIRAMER ACETATE
     Dosage: 20 MILLIGRAM, QD (ONCE DAILY)
     Dates: start: 20240906
  7. GLATIRAMER ACETATE [Suspect]
     Active Substance: GLATIRAMER ACETATE
     Dosage: 20 MILLIGRAM, QD (ONCE DAILY)
     Dates: start: 20240906
  8. GLATIRAMER ACETATE [Suspect]
     Active Substance: GLATIRAMER ACETATE
     Dosage: 20 MILLIGRAM, QD (ONCE DAILY)
     Route: 058
     Dates: start: 20240906
  9. FLECAINIDE [Concomitant]
     Active Substance: FLECAINIDE
  10. FLECAINIDE [Concomitant]
     Active Substance: FLECAINIDE
     Route: 065
  11. FLECAINIDE [Concomitant]
     Active Substance: FLECAINIDE
     Route: 065
  12. FLECAINIDE [Concomitant]
     Active Substance: FLECAINIDE
  13. DILTIAZEM [Concomitant]
     Active Substance: DILTIAZEM
  14. DILTIAZEM [Concomitant]
     Active Substance: DILTIAZEM
     Route: 065
  15. DILTIAZEM [Concomitant]
     Active Substance: DILTIAZEM
     Route: 065
  16. DILTIAZEM [Concomitant]
     Active Substance: DILTIAZEM
  17. ZOPICLONE [Concomitant]
     Active Substance: ZOPICLONE
  18. ZOPICLONE [Concomitant]
     Active Substance: ZOPICLONE
     Route: 065
  19. ZOPICLONE [Concomitant]
     Active Substance: ZOPICLONE
     Route: 065
  20. ZOPICLONE [Concomitant]
     Active Substance: ZOPICLONE
  21. VITAMIN D [Concomitant]
     Active Substance: VITAMIN D NOS
  22. VITAMIN D [Concomitant]
     Active Substance: VITAMIN D NOS
     Route: 065
  23. VITAMIN D [Concomitant]
     Active Substance: VITAMIN D NOS
     Route: 065
  24. VITAMIN D [Concomitant]
     Active Substance: VITAMIN D NOS
  25. OMEGA 3 [Concomitant]
     Active Substance: CAPSAICIN
  26. OMEGA 3 [Concomitant]
     Active Substance: CAPSAICIN
     Route: 065
  27. OMEGA 3 [Concomitant]
     Active Substance: CAPSAICIN
     Route: 065
  28. OMEGA 3 [Concomitant]
     Active Substance: CAPSAICIN
  29. MAGNESIUM [Concomitant]
     Active Substance: MAGNESIUM
  30. MAGNESIUM [Concomitant]
     Active Substance: MAGNESIUM
     Route: 065
  31. MAGNESIUM [Concomitant]
     Active Substance: MAGNESIUM
     Route: 065
  32. MAGNESIUM [Concomitant]
     Active Substance: MAGNESIUM
  33. CALCIUM [Concomitant]
     Active Substance: CALCIUM
  34. CALCIUM [Concomitant]
     Active Substance: CALCIUM
     Route: 065
  35. CALCIUM [Concomitant]
     Active Substance: CALCIUM
     Route: 065
  36. CALCIUM [Concomitant]
     Active Substance: CALCIUM
  37. POTASSIUM [Concomitant]
     Active Substance: POTASSIUM
  38. POTASSIUM [Concomitant]
     Active Substance: POTASSIUM
     Route: 065
  39. POTASSIUM [Concomitant]
     Active Substance: POTASSIUM
     Route: 065
  40. POTASSIUM [Concomitant]
     Active Substance: POTASSIUM

REACTIONS (10)
  - Injection related reaction [Unknown]
  - Injection site pain [Unknown]
  - Injection site erythema [Unknown]
  - Fatigue [Unknown]
  - Injection site warmth [Unknown]
  - Injection site induration [Unknown]
  - Injection site haemorrhage [Unknown]
  - Injection site mass [Unknown]
  - Muscle spasms [Unknown]
  - Product substitution issue [Unknown]
